FAERS Safety Report 7372316 (Version 27)
Quarter: 2016Q1

REPORT INFORMATION
  Report Type: Report from Study
  Country: CA (occurrence: CA)
  Receive Date: 20100430
  Receipt Date: 20160217
  Transmission Date: 20160526
  Serious: Yes (Other)
  Sender: FDA-Public Use
  Company Number: PHHY2010CA01609

PATIENT
  Age: 62 Year
  Sex: Male

DRUGS (4)
  1. AFINITOR [Suspect]
     Active Substance: EVEROLIMUS
     Indication: PRODUCT USED FOR UNKNOWN INDICATION
     Route: 065
  2. SANDOSTATIN LAR DEPOT [Suspect]
     Active Substance: OCTREOTIDE ACETATE
     Indication: NEUROENDOCRINE CARCINOMA
     Dosage: 30 MG, EVERY 2 WEEKS
     Route: 030
     Dates: start: 20060901
  3. SANDOSTATIN LAR DEPOT [Suspect]
     Active Substance: OCTREOTIDE ACETATE
     Dosage: 60 MG, EVERY 3 WEEKS
     Route: 030
  4. SANDOSTATIN LAR DEPOT [Suspect]
     Active Substance: OCTREOTIDE ACETATE
     Dosage: 60 MG, EVERY 2 WEEKS
     Route: 030

REACTIONS (33)
  - Blood pressure systolic increased [Unknown]
  - Depression [Unknown]
  - Injection site discomfort [Unknown]
  - Injection site haemorrhage [Unknown]
  - Lung neoplasm [Unknown]
  - Malignant neoplasm progression [Unknown]
  - Injection site pain [Unknown]
  - Malaise [Unknown]
  - Fatigue [Unknown]
  - Mass [Not Recovered/Not Resolved]
  - Nipple pain [Unknown]
  - Abdominal distension [Unknown]
  - Asthenia [Unknown]
  - Injection site mass [Unknown]
  - Blood pressure diastolic increased [Unknown]
  - Skin discolouration [Unknown]
  - Inappropriate schedule of drug administration [Unknown]
  - Heart rate increased [Unknown]
  - Pelvic fluid collection [Unknown]
  - Myalgia [Unknown]
  - Urine analysis abnormal [Unknown]
  - Lymphatic system neoplasm [Unknown]
  - Blood pressure diastolic decreased [Unknown]
  - Weight increased [Unknown]
  - General physical health deterioration [Unknown]
  - Hepatic failure [Unknown]
  - Localised intraabdominal fluid collection [Unknown]
  - Oedema [Unknown]
  - Eye colour change [Unknown]
  - Therapeutic response decreased [Unknown]
  - Decreased appetite [Unknown]
  - Urine output decreased [Unknown]
  - Oedema peripheral [Unknown]

NARRATIVE: CASE EVENT DATE: 20100426
